FAERS Safety Report 8359745-3 (Version None)
Quarter: 2012Q2

REPORT INFORMATION
  Report Type: 
  Country: None (occurrence: None)
  Receive Date: 20120515
  Receipt Date: 20120507
  Transmission Date: 20120825
  Serious: Yes (Hospitalization, Other)
  Sender: FDA-Public Use
  Company Number: US-BAYER-2011-069280

PATIENT
  Age: 35 Year
  Sex: Female
  Weight: 90.703 kg

DRUGS (4)
  1. ST. JOHN'S WORT [Concomitant]
     Dosage: UNK
     Route: 048
     Dates: start: 20050101
  2. NEXIUM [Concomitant]
     Dosage: 40 MG, DAILY
     Dates: start: 20090816
  3. YASMIN [Suspect]
     Dosage: UNK
     Dates: start: 20041101, end: 20050801
  4. NSAID'S [Concomitant]
     Dosage: UNK
     Route: 048
     Dates: start: 20000101, end: 20100101

REACTIONS (5)
  - CHOLECYSTITIS CHRONIC [None]
  - BILIARY DYSKINESIA [None]
  - GALLBLADDER DISORDER [None]
  - INJURY [None]
  - PAIN [None]
